FAERS Safety Report 7713414-9 (Version None)
Quarter: 2011Q3

REPORT INFORMATION
  Report Type: 
  Country: None (occurrence: None)
  Receive Date: 20110826
  Receipt Date: 20110822
  Transmission Date: 20111222
  Serious: Yes (Life-Threatening, Other)
  Sender: FDA-Public Use
  Company Number: US-JNJFOC-20110810772

PATIENT
  Sex: Female
  Weight: 41 kg

DRUGS (18)
  1. PREDNISONE [Concomitant]
  2. PROBIOTICS [Concomitant]
  3. FERROUS SULFATE TAB [Concomitant]
  4. VITAMIN D [Concomitant]
  5. CALCIUM CARBONATE [Concomitant]
  6. FLUTICASONE PROPIONATE [Concomitant]
  7. REMICADE [Suspect]
     Indication: COLITIS ULCERATIVE
     Route: 042
     Dates: start: 20110510
  8. REMICADE [Suspect]
     Route: 042
     Dates: start: 20110621
  9. SINGULAIR [Concomitant]
  10. ALBUTEROL SULFATE AUTOHALER [Concomitant]
  11. ANTIBIOTICS [Concomitant]
     Indication: INFLAMMATORY BOWEL DISEASE
  12. MULTI-VITAMINS [Concomitant]
  13. ERYTHROMYCIN [Concomitant]
  14. REMICADE [Suspect]
     Route: 042
     Dates: start: 20090519
  15. OMEPRAZOLE [Concomitant]
  16. MESALAMINE [Concomitant]
     Route: 048
  17. LACTAID [Concomitant]
  18. GAS-X [Concomitant]

REACTIONS (1)
  - RESPIRATORY TRACT OEDEMA [None]
